FAERS Safety Report 14449898 (Version 4)
Quarter: 2019Q4

REPORT INFORMATION
  Report Type: Report from Study
  Country: US (occurrence: US)
  Receive Date: 20180128
  Receipt Date: 20191224
  Transmission Date: 20200122
  Serious: Yes (Hospitalization, Other)
  Sender: FDA-Public Use
  Company Number: US-ABBVIE-18K-163-2215975-00

PATIENT
  Age: 54 Year
  Sex: Male
  Weight: 121.22 kg

DRUGS (4)
  1. AMLODIPINE [Concomitant]
     Active Substance: AMLODIPINE BESYLATE
     Indication: HYPERTENSION
  2. HUMIRA [Suspect]
     Active Substance: ADALIMUMAB
     Route: 058
     Dates: start: 201801, end: 201801
  3. HUMIRA [Suspect]
     Active Substance: ADALIMUMAB
     Indication: CROHN^S DISEASE
     Route: 058
     Dates: start: 201712, end: 201712
  4. HUMIRA [Suspect]
     Active Substance: ADALIMUMAB
     Route: 058
     Dates: start: 201801

REACTIONS (8)
  - Eye haemorrhage [Recovering/Resolving]
  - Vitreous floaters [Not Recovered/Not Resolved]
  - Staphylococcal infection [Recovering/Resolving]
  - Cardiac failure congestive [Recovering/Resolving]
  - Swelling face [Recovering/Resolving]
  - Hypertension [Recovering/Resolving]
  - Memory impairment [Recovering/Resolving]
  - Hyperhidrosis [Recovered/Resolved]

NARRATIVE: CASE EVENT DATE: 201801
